FAERS Safety Report 23245897 (Version 1)
Quarter: 2023Q4

REPORT INFORMATION
  Report Type: Spontaneous
  Country: CN (occurrence: CN)
  Receive Date: 20231130
  Receipt Date: 20231130
  Transmission Date: 20240110
  Serious: Yes (Other)
  Sender: FDA-Public Use
  Company Number: CN-002147023-NVSC2023CN251100

PATIENT
  Age: 72 Year
  Sex: Female

DRUGS (2)
  1. TRAMETINIB [Suspect]
     Active Substance: TRAMETINIB
     Indication: Pancreatic carcinoma metastatic
     Dosage: 1 MG, QD
     Route: 065
     Dates: start: 202103, end: 202105
  2. PALBOCICLIB [Suspect]
     Active Substance: PALBOCICLIB
     Indication: Pancreatic carcinoma metastatic
     Dosage: 75 MG, QD
     Route: 065
     Dates: start: 202103, end: 202105

REACTIONS (7)
  - Fatigue [Unknown]
  - Pancreatic carcinoma metastatic [Unknown]
  - Malignant neoplasm progression [Unknown]
  - Stomatitis [Unknown]
  - Pyrexia [Unknown]
  - Product use in unapproved indication [Unknown]
  - Product use issue [Unknown]

NARRATIVE: CASE EVENT DATE: 20210601
